FAERS Safety Report 22881840 (Version 8)
Quarter: 2024Q2

REPORT INFORMATION
  Report Type: Other
  Country: CA (occurrence: None)
  Receive Date: 20230830
  Receipt Date: 20240524
  Transmission Date: 20240716
  Serious: Yes (Hospitalization, Other)
  Sender: FDA-Public Use
  Company Number: CA-ROCHE-3103792

PATIENT
  Age: 59 Year
  Sex: Male
  Weight: 147.2 kg

DRUGS (13)
  1. AVASTIN [Suspect]
     Active Substance: BEVACIZUMAB
     Indication: Hereditary haemorrhagic telangiectasia
     Route: 042
     Dates: start: 20220506, end: 20220617
  2. AVASTIN [Suspect]
     Active Substance: BEVACIZUMAB
     Indication: Haemorrhage
     Dosage: FIRST DOSE RECEIVED AT THE HOSPITAL Q 2 WEEKS. DOSE NOT PROVIDED AS NO PIR RECEIVED
     Route: 042
     Dates: start: 20220506, end: 20220506
  3. AVASTIN [Suspect]
     Active Substance: BEVACIZUMAB
     Indication: Anaemia
     Route: 042
     Dates: start: 20220520, end: 20220714
  4. AVASTIN [Suspect]
     Active Substance: BEVACIZUMAB
     Route: 042
     Dates: start: 20220811, end: 20230227
  5. AVASTIN [Suspect]
     Active Substance: BEVACIZUMAB
     Route: 042
     Dates: start: 20230526, end: 20231218
  6. AVASTIN [Suspect]
     Active Substance: BEVACIZUMAB
     Route: 042
     Dates: start: 20240319, end: 20240416
  7. ADALAT [Concomitant]
     Active Substance: NIFEDIPINE
  8. ADVAIR HFA [Concomitant]
     Active Substance: FLUTICASONE PROPIONATE\SALMETEROL XINAFOATE
  9. DIOVAN [Concomitant]
     Active Substance: VALSARTAN
  10. FUROSEMIDE [Concomitant]
     Active Substance: FUROSEMIDE
     Route: 065
     Dates: start: 2022, end: 2022
  11. FUROSEMIDE [Concomitant]
     Active Substance: FUROSEMIDE
     Dates: start: 2022, end: 2022
  12. VENTOLIN [Concomitant]
     Active Substance: ALBUTEROL SULFATE
  13. BISOPROLOL FUMARATE [Concomitant]
     Active Substance: BISOPROLOL FUMARATE

REACTIONS (22)
  - Pulmonary oedema [Unknown]
  - Localised infection [Not Recovered/Not Resolved]
  - Fall [Unknown]
  - Diabetes mellitus [Unknown]
  - Oxygen saturation decreased [Unknown]
  - Decreased appetite [Unknown]
  - Nail discolouration [Unknown]
  - Tongue haemorrhage [Recovered/Resolved]
  - Contusion [Unknown]
  - Paraesthesia [Unknown]
  - Epistaxis [Unknown]
  - Mouth haemorrhage [Unknown]
  - Weight decreased [Unknown]
  - Blood pressure systolic increased [Unknown]
  - Weight increased [Unknown]
  - Blood pressure increased [Unknown]
  - Skin ulcer [Not Recovered/Not Resolved]
  - Off label use [Unknown]
  - Herpes zoster [Unknown]
  - Dyspnoea [Unknown]
  - Off label use [Unknown]
  - Blood pressure systolic increased [Unknown]

NARRATIVE: CASE EVENT DATE: 20220520
